FAERS Safety Report 9156963 (Version 1)
Quarter: 2013Q1

REPORT INFORMATION
  Report Type: Spontaneous
  Country: FR (occurrence: None)
  Receive Date: 20130212
  Receipt Date: 20130212
  Transmission Date: 20140127
  Serious: Yes (Hospitalization)
  Sender: FDA-Public Use
  Company Number: 7191384

PATIENT
  Age: 84 Year
  Sex: Male

DRUGS (13)
  1. LEVOTHYROX (LEVOTHYROXINE SODIUM) INFUSION [Suspect]
     Indication: PRODUCT USED FOR UNKNOWN INDICATION
     Route: 048
  2. COUMADINE [Suspect]
     Route: 048
     Dates: end: 20121010
  3. CORDARONE [Suspect]
     Route: 048
  4. ATORVASTATIN (ATORVASTATIN) [Suspect]
     Route: 048
  5. FUROSEMIDE (FUROSEMIDE) [Concomitant]
  6. CARDENSIEL (BISOPROLOL FUMARATE) [Concomitant]
  7. AMLODIPINE (AMLODIPINE) [Concomitant]
  8. NOVOMIX (INSULIN ASPART) [Concomitant]
  9. LEVOCETIRIZINE (LEVOCETIRIZINE) [Concomitant]
  10. MACROGOL (MACROGOL) [Concomitant]
  11. LYRICA (PREGABALIN) [Concomitant]
  12. IXPRIM [Concomitant]
  13. LANSOPRAZOLE (LANSOPRAZOLE) [Concomitant]

REACTIONS (3)
  - Normochromic normocytic anaemia [None]
  - International normalised ratio increased [None]
  - Drug interaction [None]
